FAERS Safety Report 4966157-9 (Version None)
Quarter: 2006Q1

REPORT INFORMATION
  Report Type: 
  Country: None (occurrence: None)
  Receive Date: 20060201
  Receipt Date: 20051114
  Transmission Date: 20060701
  Serious: No
  Sender: FDA-Public Use
  Company Number: 2005PV004943

PATIENT
  Age: 73 Year
  Sex: Female
  Weight: 103.4201 kg

DRUGS (6)
  1. BYETTA [Suspect]
     Indication: DIABETES MELLITUS NON-INSULIN-DEPENDENT
     Dosage: 5 MCG;BID;SC
     Route: 058
     Dates: start: 20051104
  2. DIAVAN- MINERAL SUPPLEMENTS [Concomitant]
  3. NORVASC [Concomitant]
  4. LASIX [Concomitant]
  5. POTASSIUM [Concomitant]
  6. ZOCOR [Concomitant]

REACTIONS (3)
  - DECREASED APPETITE [None]
  - NAUSEA [None]
  - WEIGHT DECREASED [None]
